FAERS Safety Report 7660373-3 (Version None)
Quarter: 2011Q3

REPORT INFORMATION
  Report Type: 
  Country: None (occurrence: None)
  Receive Date: 20110805
  Receipt Date: 20110721
  Transmission Date: 20111222
  Serious: Yes (Hospitalization)
  Sender: FDA-Public Use
  Company Number: IN-WATSON-2011-11872

PATIENT

DRUGS (3)
  1. CLONIDINE [Suspect]
     Indication: ANAESTHESIA
     Dosage: 2 UG/KG, UNK
     Route: 008
  2. FENTANYL CITRATE [Suspect]
     Indication: ANAESTHESIA
     Dosage: 1 UG/KG, SINGLE
  3. ROPIVACAINE HYDROCHLORIDE [Suspect]
     Indication: ANAESTHESIA
     Dosage: 0.25%, 1 ML/KG
     Route: 008

REACTIONS (7)
  - DELAYED RECOVERY FROM ANAESTHESIA [None]
  - HYPOTENSION [None]
  - BRADYCARDIA [None]
  - DRY MOUTH [None]
  - VOMITING [None]
  - NAUSEA [None]
  - RESPIRATORY DEPRESSION [None]
